FAERS Safety Report 24202319 (Version 2)
Quarter: 2024Q3

REPORT INFORMATION
  Report Type: Spontaneous
  Country: IR (occurrence: IR)
  Receive Date: 20240812
  Receipt Date: 20240823
  Transmission Date: 20241016
  Serious: Yes (Other)
  Sender: ALKEM
  Company Number: IR-ALKEM LABORATORIES LIMITED-IR-ALKEM-2024-17904

PATIENT
  Age: 51 Year
  Sex: Male

DRUGS (13)
  1. DICLOFENAC [Suspect]
     Active Substance: DICLOFENAC
     Indication: Back pain
     Dosage: UNK (INJECTION)
     Route: 030
  2. ATORVASTATIN CALCIUM [Suspect]
     Active Substance: ATORVASTATIN CALCIUM
     Indication: Acute coronary syndrome
     Dosage: 80 MILLIGRAM
     Route: 065
  3. ATORVASTATIN CALCIUM [Suspect]
     Active Substance: ATORVASTATIN CALCIUM
     Indication: Kounis syndrome
  4. CLOPIDOGREL [Suspect]
     Active Substance: CLOPIDOGREL BISULFATE
     Indication: Acute coronary syndrome
     Dosage: 300 MILLIGRAM
     Route: 065
  5. CLOPIDOGREL [Suspect]
     Active Substance: CLOPIDOGREL BISULFATE
     Indication: Kounis syndrome
  6. METOPROLOL SUCCINATE [Suspect]
     Active Substance: METOPROLOL SUCCINATE
     Indication: Acute coronary syndrome
     Dosage: 50 MILLIGRAM
     Route: 048
  7. METOPROLOL SUCCINATE [Suspect]
     Active Substance: METOPROLOL SUCCINATE
     Indication: Kounis syndrome
  8. ASPIRIN [Suspect]
     Active Substance: ASPIRIN
     Indication: Acute coronary syndrome
     Dosage: 325 MILLIGRAM
     Route: 065
  9. ASPIRIN [Suspect]
     Active Substance: ASPIRIN
     Indication: Kounis syndrome
  10. NITROGLYCERIN [Suspect]
     Active Substance: NITROGLYCERIN
     Indication: Acute coronary syndrome
     Dosage: UNK (10 MICROGRAM PER MINUTE)
     Route: 042
  11. NITROGLYCERIN [Suspect]
     Active Substance: NITROGLYCERIN
     Indication: Kounis syndrome
  12. HEPARIN [Suspect]
     Active Substance: HEPARIN SODIUM
     Indication: Acute coronary syndrome
     Dosage: UNK (60 UNITS PER KILOGRAM PER HOUR)
     Route: 065
  13. HEPARIN [Suspect]
     Active Substance: HEPARIN SODIUM
     Indication: Kounis syndrome

REACTIONS (2)
  - Kounis syndrome [Recovered/Resolved]
  - Drug ineffective [Unknown]
